FAERS Safety Report 9937120 (Version 1)
Quarter: 2014Q1

REPORT INFORMATION
  Report Type: Spontaneous
  Country: US (occurrence: US)
  Receive Date: 20140301
  Receipt Date: 20140301
  Transmission Date: 20141002
  Serious: Yes (Life-Threatening)
  Sender: FDA-Public Use
  Company Number: US-ASTRAZENECA-2014SE14173

PATIENT
  Age: 59 Year
  Sex: Male

DRUGS (4)
  1. LISINOPRIL [Suspect]
     Indication: HYPERTENSION
     Dosage: 30X10 MG;300 MG
     Route: 048
  2. METFORMIN [Suspect]
     Indication: TYPE 2 DIABETES MELLITUS
     Dosage: 60X500 MG ; 30 GR
     Route: 048
  3. AMLODIPINE [Suspect]
     Dosage: 30X10 MG;300 MG
     Route: 048
  4. SIMVASTATIN [Suspect]
     Route: 048

REACTIONS (8)
  - Suicide attempt [Recovered/Resolved]
  - Overdose [Recovered/Resolved]
  - Lactic acidosis [Recovered/Resolved]
  - Bradycardia [Recovered/Resolved]
  - Cardiogenic shock [Recovered/Resolved]
  - Renal failure acute [Recovered/Resolved]
  - Hypotension [Recovered/Resolved]
  - Hypoglycaemia [Recovered/Resolved]
